FAERS Safety Report 9046394 (Version 1)
Quarter: 2013Q1

REPORT INFORMATION
  Report Type: Spontaneous
  Country: US (occurrence: None)
  Receive Date: 20130128
  Receipt Date: 20130128
  Transmission Date: 20140127
  Serious: Yes (Other)
  Sender: FDA-Public Use
  Company Number: None

PATIENT
  Sex: Male

DRUGS (1)
  1. XELODA 500MG ROCHE PHARAMCEUTICALS [Suspect]
     Dosage: 500MG   BID FOR 14 DAYS ON,  7 DAYS OFF   PO?11/26/2012  TO  DECEMBER  2012
     Route: 048
     Dates: start: 20121126, end: 201212

REACTIONS (3)
  - Diarrhoea [None]
  - Dehydration [None]
  - Fatigue [None]
